FAERS Safety Report 16939111 (Version 7)
Quarter: 2023Q1

REPORT INFORMATION
  Report Type: Spontaneous
  Country: PK (occurrence: PK)
  Receive Date: 20191020
  Receipt Date: 20230216
  Transmission Date: 20230418
  Serious: Yes (Other)
  Sender: FDA-Public Use
  Company Number: PK-PFIZER INC-2019388195

PATIENT
  Age: 38 Year
  Sex: Female
  Weight: 56 kg

DRUGS (25)
  1. ENBREL [Suspect]
     Active Substance: ETANERCEPT
     Indication: Ankylosing spondylitis
     Dosage: 50 MILLIGRAM, QWK FOR 4 MONTHS AFTER MEAL
     Route: 058
     Dates: start: 201809
  2. ENBREL [Suspect]
     Active Substance: ETANERCEPT
     Dosage: 50 MILLIGRAM,EVERY 10 DAYS
     Route: 058
  3. ENBREL [Suspect]
     Active Substance: ETANERCEPT
     Dosage: 50 MILLIGRAM, QWK
     Route: 058
     Dates: start: 20190904
  4. ENBREL [Suspect]
     Active Substance: ETANERCEPT
     Dosage: 50MG, ONCE A WEEK
     Route: 058
     Dates: start: 20191010
  5. NUBEROL [Concomitant]
     Dosage: 700 MILLIGRAM, QD FOR 3 MONTHS AFTER BREAKFAST
     Route: 048
     Dates: start: 2018
  6. COMFORTA [Concomitant]
     Dosage: 0.5 DOSAGE FORM, QD ( (1/2 TABS), 1X/DAY FOR 3 MONTHS AFTER DINNER)
     Route: 048
     Dates: start: 2018
  7. INDROP-D [Concomitant]
     Dosage: 1 DOSAGE FORM, QMO (200000 IU (1 CAPS), MONTHLY FOR 4 MONTHS AFTER BREAKFAST)
     Route: 048
     Dates: start: 2013
  8. FEFOL VIT [Concomitant]
     Dosage: 150 MG (1 CAP), 1X/DAY FOR 4 MONTHS AFTER MEAL
     Route: 048
     Dates: start: 20191005
  9. FEFOL VIT [Concomitant]
     Dosage: 1 DAILY, 2 MONTHS
  10. FEFOL VIT [Concomitant]
     Dosage: 1 DAILY, 2 MONTHS
  11. DICLOFENAC SODIUM [Concomitant]
     Active Substance: DICLOFENAC SODIUM
     Dosage: FIVE DAYS APPLY ON BACK
  12. DICLOFENAC SODIUM [Concomitant]
     Active Substance: DICLOFENAC SODIUM
     Dosage: UNK  *SINGLE
  13. TORADOL [Concomitant]
     Active Substance: KETOROLAC TROMETHAMINE
     Dosage: UNK
     Route: 042
  14. TORADOL [Concomitant]
     Active Substance: KETOROLAC TROMETHAMINE
     Dosage: UNK
     Route: 042
  15. DIAGESIC P [Concomitant]
     Dosage: UNK
  16. DIAGESIC P [Concomitant]
     Dosage: UNK
  17. RAMIPACE [Concomitant]
     Dosage: 5 MG, 1X/DAY
  18. RAMIPACE [Concomitant]
     Dosage: 5 MG, 1X/DAY
  19. VITAMINS [Concomitant]
     Active Substance: VITAMINS
     Dosage: 1 DAILY, 2 MONTHS
  20. VITAMINS [Concomitant]
     Active Substance: VITAMINS
     Dosage: UNK  *SINGLE
  21. Flux [Concomitant]
     Dosage: 20 MG 1 MORING, 3 MONTHTS
  22. Flux [Concomitant]
     Dosage: 20 UNK  *SINGLE
  23. MOVAX [Concomitant]
     Dosage: 2MG 1 TAB DAILY FOR 4 MONTHS
  24. MOVAX [Concomitant]
     Dosage: 2MG 1 TAB DAILY FOR 4 MONTHS
  25. Ossobon d [Concomitant]
     Dosage: 1 DF, 1X/DAY (830 MG, 1 TAB ORALLY ONCE DAILY FOR 4 MONTHS AFTER MEAL)
     Route: 048

REACTIONS (9)
  - Uveitis [Recovered/Resolved]
  - Chronic kidney disease [Recovered/Resolved]
  - Proteinuria [Recovered/Resolved]
  - Pain [Not Recovered/Not Resolved]
  - Off label use [Unknown]
  - Sacroiliitis [Unknown]
  - Back pain [Unknown]
  - Musculoskeletal stiffness [Not Recovered/Not Resolved]
  - Hypoaesthesia [Not Recovered/Not Resolved]

NARRATIVE: CASE EVENT DATE: 20191005
